FAERS Safety Report 15590497 (Version 3)
Quarter: 2025Q2

REPORT INFORMATION
  Report Type: Spontaneous
  Country: GR (occurrence: GR)
  Receive Date: 20181106
  Receipt Date: 20250419
  Transmission Date: 20250717
  Serious: Yes (Other)
  Sender: ACCORD
  Company Number: GR-ACCORD-091684

PATIENT
  Age: 36 Year
  Sex: Female

DRUGS (2)
  1. CAPECITABINE [Suspect]
     Active Substance: CAPECITABINE
     Indication: Colorectal cancer
  2. OXALIPLATIN [Suspect]
     Active Substance: OXALIPLATIN
     Indication: Colorectal cancer

REACTIONS (4)
  - Splenomegaly [Unknown]
  - Varices oesophageal [Unknown]
  - Hepatic fibrosis [Unknown]
  - Non-cirrhotic portal hypertension [Unknown]
